FAERS Safety Report 8551038-4 (Version None)
Quarter: 2012Q3

REPORT INFORMATION
  Report Type: 
  Country: None (occurrence: None)
  Receive Date: 20120730
  Receipt Date: 20120720
  Transmission Date: 20120928
  Serious: Yes (Hospitalization)
  Sender: FDA-Public Use
  Company Number: KR-BAXTER-2012BAX010845

PATIENT
  Sex: Female
  Weight: 76 kg

DRUGS (6)
  1. PHYSIONEAL 1.5% [Suspect]
     Route: 033
     Dates: start: 20120712
  2. EXTRANEAL [Suspect]
     Route: 033
     Dates: start: 20120712
  3. PHYSIONEAL 2.5% [Suspect]
     Route: 033
     Dates: start: 20120706
  4. EXTRANEAL [Suspect]
  5. PHYSIONEAL 1.5% [Suspect]
  6. PHYSIONEAL 2.5% [Suspect]
     Route: 033
     Dates: start: 20120627, end: 20120705

REACTIONS (1)
  - PULMONARY OEDEMA [None]
